FAERS Safety Report 5424308-6 (Version None)
Quarter: 2007Q3

REPORT INFORMATION
  Report Type: 
  Country: None (occurrence: None)
  Receive Date: 20070823
  Receipt Date: 20070820
  Transmission Date: 20080115
  Serious: Yes (Other)
  Sender: FDA-Public Use
  Company Number: US-BOEHRINGER INGELHEIM PHARMACEUTICALS, INC.-2007-BP-18227BP

PATIENT
  Sex: Male

DRUGS (1)
  1. FLOMAX [Suspect]
     Indication: POLLAKIURIA
     Route: 048
     Dates: end: 20070813

REACTIONS (4)
  - ABDOMINAL PAIN [None]
  - BURNING SENSATION [None]
  - HERNIA [None]
  - PAIN [None]
